FAERS Safety Report 6877414-3 (Version None)
Quarter: 2010Q3

REPORT INFORMATION
  Report Type: 
  Country: None (occurrence: None)
  Receive Date: 20100727
  Receipt Date: 20100119
  Transmission Date: 20110219
  Serious: No
  Sender: FDA-Public Use
  Company Number: US-ABBOTT-10P-163-0621874-00

PATIENT
  Sex: Male
  Weight: 103.51 kg

DRUGS (4)
  1. SYNTHROID [Suspect]
     Indication: HYPOTHYROIDISM
     Route: 048
     Dates: start: 20080101, end: 20080101
  2. SYNTHROID [Suspect]
     Route: 048
     Dates: start: 20091001
  3. LEVOTHYROXINE [Concomitant]
     Indication: HYPOTHYROIDISM
  4. MULTIPLE UNLISTED CONCOMITANTS [Concomitant]
     Indication: PRODUCT USED FOR UNKNOWN INDICATION

REACTIONS (2)
  - ANXIETY [None]
  - MALAISE [None]
